FAERS Safety Report 9001205 (Version 1)
Quarter: 2013Q1

REPORT INFORMATION
  Report Type: Spontaneous
  Country: US (occurrence: US)
  Receive Date: 20130107
  Receipt Date: 20130107
  Transmission Date: 20140127
  Serious: No
  Sender: FDA-Public Use
  Company Number: US-JNJFOC-20121205260

PATIENT
  Age: 47 Year
  Sex: Male

DRUGS (10)
  1. INVEGA SUSTENNA [Suspect]
     Indication: SCHIZOAFFECTIVE DISORDER
     Route: 030
  2. INVEGA SUSTENNA [Suspect]
     Indication: BIPOLAR DISORDER
     Route: 030
  3. INVEGA [Suspect]
     Indication: SCHIZOAFFECTIVE DISORDER
     Route: 048
  4. INVEGA [Suspect]
     Indication: SCHIZOAFFECTIVE DISORDER
     Route: 048
  5. INVEGA [Suspect]
     Indication: BIPOLAR DISORDER
     Route: 048
  6. INVEGA [Suspect]
     Indication: BIPOLAR DISORDER
     Route: 048
  7. COGENTIN [Concomitant]
     Route: 065
  8. ZOLOFT [Concomitant]
     Route: 065
  9. TEGRETOL [Concomitant]
     Route: 065
  10. BENADRYL [Concomitant]
     Route: 065

REACTIONS (1)
  - Extrapyramidal disorder [Not Recovered/Not Resolved]
